FAERS Safety Report 9140293 (Version 2)
Quarter: 2013Q1

REPORT INFORMATION
  Report Type: Spontaneous
  Country: JP (occurrence: JP)
  Receive Date: 20130305
  Receipt Date: 20130308
  Transmission Date: 20140127
  Serious: Yes (Other)
  Sender: FDA-Public Use
  Company Number: JP-PFIZER INC-2013072120

PATIENT
  Age: 61 Year
  Sex: Female

DRUGS (5)
  1. IRINOTECAN HCL [Suspect]
     Indication: COLORECTAL CANCER METASTATIC
     Dosage: UNK
  2. OXALIPLATIN [Suspect]
     Indication: COLORECTAL CANCER METASTATIC
     Dosage: UNK
  3. FOLINIC ACID [Concomitant]
     Indication: COLORECTAL CANCER METASTATIC
  4. FLUOROURACIL [Concomitant]
     Indication: COLORECTAL CANCER METASTATIC
  5. BEVACIZUMAB [Concomitant]
     Indication: COLORECTAL CANCER METASTATIC

REACTIONS (1)
  - Neurotoxicity [Recovering/Resolving]
